FAERS Safety Report 18076340 (Version 4)
Quarter: 2020Q3

REPORT INFORMATION
  Report Type: Report from Study
  Country: None (occurrence: US)
  Receive Date: 20200728
  Receipt Date: 20200827
  Transmission Date: 20201103
  Serious: Yes (Hospitalization, Other)
  Sender: FDA-Public Use
  Company Number: US-ABBVIE-20K-163-3394566-00

PATIENT
  Age: 82 Year
  Sex: Male
  Weight: 70.82 kg

DRUGS (1)
  1. HUMIRA [Suspect]
     Active Substance: ADALIMUMAB
     Indication: CROHN^S DISEASE
     Route: 058
     Dates: start: 20190603, end: 20200326

REACTIONS (16)
  - Blood count abnormal [Not Recovered/Not Resolved]
  - Device related infection [Recovered/Resolved]
  - Crohn^s disease [Not Recovered/Not Resolved]
  - Hypotension [Recovered/Resolved]
  - Fall [Recovered/Resolved]
  - Weight increased [Not Recovered/Not Resolved]
  - Herpes zoster [Recovered/Resolved]
  - Hypoacusis [Not Recovered/Not Resolved]
  - Loss of consciousness [Unknown]
  - Urinary tract infection [Recovered/Resolved]
  - Memory impairment [Not Recovered/Not Resolved]
  - Peripheral swelling [Not Recovered/Not Resolved]
  - Urinary retention [Not Recovered/Not Resolved]
  - Pain [Not Recovered/Not Resolved]
  - Dehydration [Recovered/Resolved]
  - Back pain [Not Recovered/Not Resolved]

NARRATIVE: CASE EVENT DATE: 202003
